FAERS Safety Report 18161671 (Version 1)
Quarter: 2020Q3

REPORT INFORMATION
  Report Type: Spontaneous
  Country: US (occurrence: US)
  Receive Date: 20200817
  Receipt Date: 20200817
  Transmission Date: 20201103
  Serious: Yes (Disabling)
  Sender: FDA-Public Use
  Company Number: None

PATIENT
  Age: 58 Year
  Sex: Female
  Weight: 55.8 kg

DRUGS (5)
  1. MAGNESIUM [Concomitant]
     Active Substance: MAGNESIUM
  2. VERAPAMIL [Concomitant]
     Active Substance: VERAPAMIL HYDROCHLORIDE
  3. CALCIUM WITH VITAMIN D [Concomitant]
     Active Substance: CALCIUM\VITAMIN D
  4. AIMOVIG [Suspect]
     Active Substance: ERENUMAB-AOOE
     Indication: MIGRAINE
     Dosage: ?          QUANTITY:1 INJECTION(S);OTHER FREQUENCY:1/MONTH;?
     Route: 058
     Dates: start: 20200218, end: 20200706
  5. TOPIRAMATE. [Concomitant]
     Active Substance: TOPIRAMATE

REACTIONS (16)
  - Nasopharyngitis [None]
  - Productive cough [None]
  - Hypertension [None]
  - Nervousness [None]
  - Palpitations [None]
  - Paraesthesia [None]
  - Peripheral swelling [None]
  - Panic attack [None]
  - Dyspnoea [None]
  - Therapeutic drug monitoring analysis incorrectly performed [None]
  - Chest discomfort [None]
  - Dyspnoea exertional [None]
  - Nausea [None]
  - Norepinephrine increased [None]
  - Cough [None]
  - Anxiety [None]

NARRATIVE: CASE EVENT DATE: 20200718
